FAERS Safety Report 11925474 (Version 4)
Quarter: 2016Q2

REPORT INFORMATION
  Report Type: Spontaneous
  Country: US (occurrence: US)
  Receive Date: 20160118
  Receipt Date: 20160510
  Transmission Date: 20160815
  Serious: Yes (Hospitalization)
  Sender: FDA-Public Use
  Company Number: US-BAYER-2016-008906

PATIENT
  Age: 16 Year
  Sex: Female

DRUGS (1)
  1. MIRENA [Suspect]
     Active Substance: LEVONORGESTREL
     Indication: CONTRACEPTION
     Dosage: 20 MCG/24HR, CONT
     Route: 015
     Dates: start: 20130325, end: 20140116

REACTIONS (5)
  - Vaginal haemorrhage [Not Recovered/Not Resolved]
  - Abdominal pain [Not Recovered/Not Resolved]
  - Device issue [Not Recovered/Not Resolved]
  - Device use error [None]
  - Uterine perforation [Not Recovered/Not Resolved]

NARRATIVE: CASE EVENT DATE: 201401
